FAERS Safety Report 13718081 (Version 2)
Quarter: 2017Q3

REPORT INFORMATION
  Report Type: Spontaneous
  Country: BR (occurrence: BR)
  Receive Date: 20170705
  Receipt Date: 20170725
  Transmission Date: 20171127
  Serious: Yes (Other)
  Sender: FDA-Public Use
  Company Number: BR-PFIZER INC-2017277225

PATIENT
  Age: 73 Year
  Sex: Female
  Weight: 92 kg

DRUGS (12)
  1. ANCORON [Concomitant]
     Active Substance: AMIODARONE HYDROCHLORIDE
     Indication: CARDIOVASCULAR DISORDER
     Dosage: 1 TABLET IN THE MORNING
  2. KETOPROFEN. [Concomitant]
     Active Substance: KETOPROFEN
     Indication: ARTHRALGIA
     Dosage: 1 TABLET EVERY 12 HOURS IN SPORADIC SITUATIONS
  3. LOSARTAN POTASSIUM. [Concomitant]
     Active Substance: LOSARTAN POTASSIUM
     Indication: HYPERTENSION
     Dosage: 1 TABLET/DAY
  4. PREGABALINA TEUTO [Suspect]
     Active Substance: PREGABALIN
     Indication: INTERVERTEBRAL DISC PROTRUSION
     Dosage: 150 MG 1 CAPSULE IN THE MORNING
     Dates: end: 2017
  5. PROPANOLOL /00030001/ [Concomitant]
     Active Substance: PROPRANOLOL HYDROCHLORIDE
     Indication: CARDIOVASCULAR DISORDER
     Dosage: 1 TABLET IN THE MORNING
  6. ATENOLOL. [Concomitant]
     Active Substance: ATENOLOL
     Indication: HYPERTENSION
     Dosage: 1 TABLET/DAY
  7. PRIMIDOL [Concomitant]
     Indication: TREMOR
     Dosage: 1 DF, 1X/DAY(1 TABLET/DAY )
  8. PREGABALINA TEUTO [Suspect]
     Active Substance: PREGABALIN
     Indication: SPINAL PAIN
  9. TAPAZOL /00022901/ [Concomitant]
     Indication: THYROID DISORDER
     Dosage: 1 TABLET/DAY
  10. ACITRETIN. [Concomitant]
     Active Substance: ACITRETIN
     Indication: PSORIASIS
     Dosage: 2 TABLETS PER WEEK
  11. PREGABALINA TEUTO [Suspect]
     Active Substance: PREGABALIN
     Indication: ARTHRALGIA
  12. RIVOTRIL [Concomitant]
     Active Substance: CLONAZEPAM
     Indication: SLEEP DISORDER
     Dosage: 1 TABLET AT NIGHT
     Dates: start: 1987

REACTIONS (5)
  - Vertigo [Recovered/Resolved]
  - Vision blurred [Recovered/Resolved]
  - Dizziness [Recovered/Resolved]
  - Pain [Unknown]
  - Spinal column injury [Unknown]

NARRATIVE: CASE EVENT DATE: 2017
